FAERS Safety Report 9820555 (Version 1)
Quarter: 2014Q1

REPORT INFORMATION
  Report Type: Spontaneous
  Country: AR (occurrence: AR)
  Receive Date: 20140116
  Receipt Date: 20140116
  Transmission Date: 20141002
  Serious: Yes (Other)
  Sender: FDA-Public Use
  Company Number: AR-BAYER-2014-004453

PATIENT
  Age: 32 Year
  Sex: Female

DRUGS (6)
  1. ACETYLSALICYLIC ACID({=100 MG) [Suspect]
     Dosage: DURING FIRST TRIMESTER
  2. METHOTREXATE [Suspect]
     Indication: SYSTEMIC LUPUS ERYTHEMATOSUS
     Dosage: 10 MG, OW UNTIL 9 WEEKS BEFORE CONCEPTION
     Route: 048
  3. LEFLUNOMIDE [Concomitant]
     Dosage: DURING FIRST TRIMESTER
  4. HYDROXYCHLOROQUINE [Concomitant]
     Dosage: DURING FIRST TRIMESTER
  5. MEPREDNISONE [Concomitant]
     Dosage: DURING FIRST TRIMESTER
  6. CHOLESTYRAMINE [Concomitant]
     Dosage: DURING FIRST TRIMESTER

REACTIONS (2)
  - Exposure during pregnancy [None]
  - Abortion spontaneous [None]
